FAERS Safety Report 23569054 (Version 1)
Quarter: 2024Q1

REPORT INFORMATION
  Report Type: Report from Study
  Country: IL (occurrence: IL)
  Receive Date: 20240227
  Receipt Date: 20240227
  Transmission Date: 20240409
  Serious: Yes (Death, Hospitalization)
  Sender: FDA-Public Use
  Company Number: IL-ABBVIE-5654905

PATIENT
  Sex: Male

DRUGS (2)
  1. CARBIDOPA\LEVODOPA [Suspect]
     Active Substance: CARBIDOPA\LEVODOPA
     Indication: Parkinson^s disease
     Dosage: MORNING DOSE 2.0ML, CONTINUOUS DOSE 2ML/HOUR, EXTRA DOSE 1ML
     Route: 050
  2. CARBIDOPA\LEVODOPA [Suspect]
     Active Substance: CARBIDOPA\LEVODOPA
     Dosage: DURATION TEXT GOES TO 16
     Route: 050
     Dates: start: 20240121

REACTIONS (3)
  - Extremity necrosis [Fatal]
  - Therapeutic product effect incomplete [Unknown]
  - General physical health deterioration [Unknown]
